FAERS Safety Report 7183812-3 (Version None)
Quarter: 2010Q4

REPORT INFORMATION
  Report Type: 
  Country: None (occurrence: None)
  Receive Date: 20101220
  Receipt Date: 20101220
  Transmission Date: 20110411
  Serious: No
  Sender: FDA-Public Use
  Company Number: None

PATIENT
  Age: 30 Year
  Sex: Female
  Weight: 61.2356 kg

DRUGS (1)
  1. SUBOXONE [Suspect]
     Indication: SUBSTANCE ABUSE
     Dosage: 8MG BUPRENORPHINE 2MG NALOXONE 2.5 DAILY SL  A LITTLE OVER 1 MONTH
     Route: 060

REACTIONS (3)
  - APPLICATION SITE PAIN [None]
  - APPLICATION SITE REACTION [None]
  - BLISTER [None]
